FAERS Safety Report 23213525 (Version 1)
Quarter: 2023Q4

REPORT INFORMATION
  Report Type: Spontaneous
  Country: BR (occurrence: BR)
  Receive Date: 20231121
  Receipt Date: 20231121
  Transmission Date: 20240110
  Serious: Yes (Other)
  Sender: FDA-Public Use
  Company Number: BR-BAYER-2023A163034

PATIENT
  Age: 85 Year
  Sex: Male
  Weight: 65 kg

DRUGS (6)
  1. NUBEQA [Suspect]
     Active Substance: DAROLUTAMIDE
     Indication: Prostate cancer
     Dosage: 600 MG, BID
     Dates: start: 20230529
  2. VYTORIN [Concomitant]
     Active Substance: EZETIMIBE\SIMVASTATIN
     Dosage: 1 TABLET A DAY
  3. OSCAL D [CALCIUM CARBONATE;VITAMIN D NOS] [Concomitant]
     Dosage: 1 TABLET IN THE MORNING AND 1 TABLET IN THE AFTERNOON
  4. PURAN [Concomitant]
     Active Substance: LEVOTHYROXINE SODIUM
     Dosage: 1 TABLET ON AN EMPTY STOMACH
  5. VITAMIN D NOS [Concomitant]
     Active Substance: VITAMIN D NOS
     Dosage: 1 TABLET A DAY
  6. PROPOLIS WAX [Concomitant]
     Active Substance: PROPOLIS WAX
     Dosage: UNK

REACTIONS (4)
  - Escherichia urinary tract infection [Recovering/Resolving]
  - Rhinorrhoea [Recovered/Resolved]
  - Dysphonia [Recovered/Resolved]
  - Pyrexia [Recovered/Resolved]

NARRATIVE: CASE EVENT DATE: 20231021
